FAERS Safety Report 7331631-7 (Version None)
Quarter: 2011Q1

REPORT INFORMATION
  Report Type: 
  Country: None (occurrence: None)
  Receive Date: 20110304
  Receipt Date: 20110225
  Transmission Date: 20110831
  Serious: Yes (Other)
  Sender: FDA-Public Use
  Company Number: US-AMGEN-USASP2011007793

PATIENT
  Age: 68 Year
  Sex: Female
  Weight: 60.771 kg

DRUGS (9)
  1. VIDAZA [Concomitant]
  2. NPLATE [Suspect]
     Indication: IDIOPATHIC THROMBOCYTOPENIC PURPURA
     Dosage: 2 A?G/KG, UNK
     Dates: start: 20101223, end: 20110104
  3. CIPROFLOXACIN [Concomitant]
  4. NPLATE [Suspect]
     Dates: start: 20101223, end: 20110104
  5. SYNTHROID [Concomitant]
  6. ACYCLOVIR [Concomitant]
  7. PLATELETS [Concomitant]
     Dosage: UNK
     Dates: start: 20110104
  8. DIFLUCAN [Concomitant]
  9. VITAMIN B-12 [Concomitant]

REACTIONS (10)
  - THROMBOCYTOPENIA [None]
  - SINUS HEADACHE [None]
  - LETHARGY [None]
  - ACUTE MYELOID LEUKAEMIA [None]
  - DRUG INEFFECTIVE [None]
  - SINUS CONGESTION [None]
  - UPPER RESPIRATORY TRACT INFECTION [None]
  - OSTEOPOROSIS [None]
  - CHRONIC OBSTRUCTIVE PULMONARY DISEASE [None]
  - ARTHRALGIA [None]
